FAERS Safety Report 26129982 (Version 1)
Quarter: 2025Q4

REPORT INFORMATION
  Report Type: Spontaneous
  Country: RU (occurrence: RU)
  Receive Date: 20251208
  Receipt Date: 20251208
  Transmission Date: 20260117
  Serious: Yes (Other)
  Sender: ROCHE
  Company Number: RU-ROCHE-10000450796

PATIENT
  Age: 70 Year
  Sex: Male

DRUGS (6)
  1. COTELLIC [Suspect]
     Active Substance: COBIMETINIB FUMARATE
     Indication: Malignant melanoma
     Dosage: DAYS 1 TO 21
     Route: 065
     Dates: start: 201707
  2. ZELBORAF [Suspect]
     Active Substance: VEMURAFENIB
     Indication: Malignant melanoma
     Dosage: DAYS 1 TO 21
     Route: 065
     Dates: start: 201707
  3. RIVAROXABAN [Concomitant]
     Active Substance: RIVAROXABAN
     Dosage: EVENING
     Route: 065
  4. AMLODIPINE BESYLATE\INDAPAMIDE\PERINDOPRIL ARGININE [Concomitant]
     Active Substance: AMLODIPINE BESYLATE\INDAPAMIDE\PERINDOPRIL ARGININE
     Dosage: 10+2.5+10 MG MORNING
  5. BISOPROLOL [Concomitant]
     Active Substance: BISOPROLOL
     Dosage: 10 MG ORALLY, ONCE (MORNING), 5 MG (EVENING)
     Route: 048
  6. ATORVASTATIN [Concomitant]
     Active Substance: ATORVASTATIN
     Dosage: EVENING
     Route: 048

REACTIONS (10)
  - Aortic arteriosclerosis [Unknown]
  - Hepatotoxicity [Unknown]
  - Hepatic steatosis [Not Recovered/Not Resolved]
  - Cholelithiasis [Unknown]
  - Renal cyst [Unknown]
  - Prostatomegaly [Unknown]
  - Lung disorder [Recovered/Resolved]
  - Arteriosclerosis coronary artery [Unknown]
  - Renal artery arteriosclerosis [Unknown]
  - Iliac artery arteriosclerosis [Unknown]
